FAERS Safety Report 20113857 (Version 1)
Quarter: 2021Q4

REPORT INFORMATION
  Report Type: Spontaneous
  Country: US (occurrence: US)
  Receive Date: 20211125
  Receipt Date: 20211125
  Transmission Date: 20220303
  Serious: No
  Sender: FDA-Public Use
  Company Number: US-ORGANON-O2111USA002544

PATIENT
  Age: 18 Year
  Sex: Female

DRUGS (2)
  1. NEXPLANON [Suspect]
     Active Substance: ETONOGESTREL
     Indication: Contraception
     Dosage: ONE EVERY THREE YEARS
     Route: 059
     Dates: start: 202101, end: 20210817
  2. MODERNA COVID-19 VACCINE [Concomitant]
     Active Substance: CX-024414

REACTIONS (3)
  - Rash [Recovered/Resolved]
  - Peripheral swelling [Recovered/Resolved]
  - Maternal exposure before pregnancy [Unknown]

NARRATIVE: CASE EVENT DATE: 20210101
